FAERS Safety Report 15487929 (Version 4)
Quarter: 2018Q4

REPORT INFORMATION
  Report Type: Spontaneous
  Country: US (occurrence: US)
  Receive Date: 20181011
  Receipt Date: 20181126
  Transmission Date: 20190205
  Serious: No
  Sender: FDA-Public Use
  Company Number: US-SA-2018SA279205

PATIENT
  Age: 58 Year
  Sex: Female

DRUGS (1)
  1. NASACORT ALLERGY 24HR [Suspect]
     Active Substance: TRIAMCINOLONE ACETONIDE
     Indication: SEASONAL ALLERGY
     Dosage: UNK, QD
     Route: 055

REACTIONS (4)
  - Device defective [Unknown]
  - Device issue [Unknown]
  - Pain [Unknown]
  - Epistaxis [Unknown]
